FAERS Safety Report 16211384 (Version 3)
Quarter: 2022Q2

REPORT INFORMATION
  Report Type: Report from Study
  Country: US (occurrence: None)
  Receive Date: 20190418
  Receipt Date: 20220623
  Transmission Date: 20220721
  Serious: Yes (Hospitalization)
  Sender: FDA-Public Use
  Company Number: US-ROCHE-2305658

PATIENT
  Age: 63 Year
  Sex: Male
  Weight: 92.162 kg

DRUGS (14)
  1. VENETOCLAX [Suspect]
     Active Substance: VENETOCLAX
     Indication: Chronic lymphocytic leukaemia
     Route: 048
     Dates: start: 20140520, end: 20140520
  2. VENETOCLAX [Suspect]
     Active Substance: VENETOCLAX
     Route: 048
     Dates: start: 20140521, end: 20140526
  3. VENETOCLAX [Suspect]
     Active Substance: VENETOCLAX
     Route: 048
     Dates: start: 20140527, end: 20140602
  4. VENETOCLAX [Suspect]
     Active Substance: VENETOCLAX
     Route: 048
     Dates: start: 20140603, end: 20140609
  5. VENETOCLAX [Suspect]
     Active Substance: VENETOCLAX
     Route: 048
     Dates: start: 20140610, end: 20190407
  6. VENETOCLAX [Suspect]
     Active Substance: VENETOCLAX
     Route: 048
     Dates: start: 20190410
  7. VENETOCLAX [Suspect]
     Active Substance: VENETOCLAX
     Route: 048
     Dates: start: 20140520, end: 20140520
  8. RITUXIMAB [Suspect]
     Active Substance: RITUXIMAB
     Indication: Chronic lymphocytic leukaemia
     Dosage: ON DAY 1 OF MONTHS 1, 2, 3, 4, 5, AND 6 (AS PER PROTOCOL)
     Route: 042
     Dates: start: 20140617, end: 20140617
  9. RITUXIMAB [Suspect]
     Active Substance: RITUXIMAB
     Dosage: ON DAY 1 OF MONTHS 2-6
     Route: 042
     Dates: start: 20140615, end: 20141104
  10. RITUXIMAB [Suspect]
     Active Substance: RITUXIMAB
     Dosage: ON DAY 1 OF MONTHS 2-6
     Route: 042
     Dates: start: 20141104, end: 20141104
  11. ACYCLOVIR [Concomitant]
     Active Substance: ACYCLOVIR
     Indication: Antiviral prophylaxis
     Route: 048
     Dates: start: 20140513
  12. ALLOPURINOL [Concomitant]
     Active Substance: ALLOPURINOL
     Dates: start: 20140508, end: 20140909
  13. SODIUM CHLORIDE [Concomitant]
     Active Substance: SODIUM CHLORIDE
     Dates: start: 20140519, end: 20140522
  14. SODIUM CHLORIDE [Concomitant]
     Active Substance: SODIUM CHLORIDE
     Dates: start: 20140617, end: 20140617

REACTIONS (2)
  - Cerebrovascular accident [Recovered/Resolved]
  - Cerebrovascular accident [Recovered/Resolved]

NARRATIVE: CASE EVENT DATE: 20190407
